FAERS Safety Report 21709073 (Version 4)
Quarter: 2023Q2

REPORT INFORMATION
  Report Type: Report from Study
  Country: US (occurrence: US)
  Receive Date: 20221210
  Receipt Date: 20230417
  Transmission Date: 20230722
  Serious: No
  Sender: FDA-Public Use
  Company Number: US-002147023-NVSC2022US285281

PATIENT
  Sex: Male

DRUGS (1)
  1. ENTRESTO [Suspect]
     Active Substance: SACUBITRIL\VALSARTAN
     Indication: Product used for unknown indication
     Dosage: 1 DOSAGE FORM, BID
     Route: 048
     Dates: start: 20221110

REACTIONS (6)
  - Weight increased [Recovering/Resolving]
  - Anxiety [Not Recovered/Not Resolved]
  - Nervousness [Unknown]
  - Stress [Not Recovered/Not Resolved]
  - Hunger [Not Recovered/Not Resolved]
  - Blood glucose increased [Recovering/Resolving]
